FAERS Safety Report 6731438-5 (Version None)
Quarter: 2010Q2

REPORT INFORMATION
  Report Type: 
  Country: None (occurrence: None)
  Receive Date: 20100518
  Receipt Date: 20100518
  Transmission Date: 20101027
  Serious: Yes (Other)
  Sender: FDA-Public Use
  Company Number: None

PATIENT
  Sex: Female
  Weight: 116.1208 kg

DRUGS (6)
  1. PEG-INTRON [Suspect]
     Indication: HEPATITIS C
     Dosage: 150 MCG ONCE WEEKLY SQ
     Route: 058
     Dates: start: 20100415, end: 20100517
  2. RIBAVIRIN [Suspect]
     Indication: HEPATITIS C
     Dosage: 3 CAPS QAM AND QPM PO
     Route: 048
     Dates: start: 20100415, end: 20100517
  3. ZOCOR [Concomitant]
  4. ASPIRIN [Concomitant]
  5. DITROPAN XL [Concomitant]
  6. PLAVIX [Concomitant]

REACTIONS (3)
  - BACK PAIN [None]
  - HEADACHE [None]
  - NECK PAIN [None]
